FAERS Safety Report 6309427-4 (Version None)
Quarter: 2009Q3

REPORT INFORMATION
  Report Type: 
  Country: None (occurrence: None)
  Receive Date: 20090814
  Receipt Date: 20090807
  Transmission Date: 20100115
  Serious: Yes (Other)
  Sender: FDA-Public Use
  Company Number: US-JNJFOC-20090803139

PATIENT
  Age: 72 Year
  Sex: Female

DRUGS (1)
  1. FENTANYL [Suspect]
     Indication: SOMATOFORM DISORDER
     Route: 062

REACTIONS (3)
  - DRUG DIVERSION [None]
  - DRUG SCREEN POSITIVE [None]
  - DRUG TOXICITY [None]
